FAERS Safety Report 4419513-1 (Version None)
Quarter: 2004Q3

REPORT INFORMATION
  Report Type: 
  Country: None (occurrence: None)
  Receive Date: 20040809
  Receipt Date: 20040209
  Transmission Date: 20050211
  Serious: No
  Sender: FDA-Public Use
  Company Number: US-GLAXOSMITHKLINE-A0497214A

PATIENT
  Sex: Female

DRUGS (1)
  1. PAXIL [Suspect]
     Indication: DEPRESSION
     Route: 048

REACTIONS (4)
  - ABNORMAL BEHAVIOUR [None]
  - CRYING [None]
  - KLEPTOMANIA [None]
  - OBSESSIVE-COMPULSIVE DISORDER [None]
